FAERS Safety Report 13743102 (Version 1)
Quarter: 2017Q3

REPORT INFORMATION
  Report Type: Spontaneous
  Country: FR (occurrence: FR)
  Receive Date: 20170711
  Receipt Date: 20170711
  Transmission Date: 20171127
  Serious: Yes (Hospitalization)
  Sender: FDA-Public Use
  Company Number: FR-JNJFOC-20170705775

PATIENT
  Age: 60 Year
  Sex: Female

DRUGS (1)
  1. REMICADE [Suspect]
     Active Substance: INFLIXIMAB
     Indication: CROHN^S DISEASE
     Route: 042
     Dates: start: 20140129, end: 201704

REACTIONS (2)
  - Squamous cell carcinoma of the vulva [Not Recovered/Not Resolved]
  - Vulvectomy [Not Recovered/Not Resolved]

NARRATIVE: CASE EVENT DATE: 20170427
